FAERS Safety Report 19686803 (Version 1)
Quarter: 2021Q3

REPORT INFORMATION
  Report Type: Spontaneous
  Country: US (occurrence: US)
  Receive Date: 20210811
  Receipt Date: 20210811
  Transmission Date: 20211014
  Serious: No
  Sender: FDA-Public Use
  Company Number: US-MEDEXUS PHARMA, INC.-2020MED00294

PATIENT
  Age: 64 Year
  Sex: Male
  Weight: 70.3 kg

DRUGS (4)
  1. RASUVO [Suspect]
     Active Substance: METHOTREXATE SODIUM
     Indication: POLYCHONDRITIS
     Dosage: 12.5 MG, 1X/WEEK ON THURSDAYS INJECTED INTO THIGH
     Route: 058
     Dates: start: 2018
  2. RASUVO [Suspect]
     Active Substance: METHOTREXATE SODIUM
     Dosage: 12.5 MG, 1X/WEEK ON THURSDAYS ALTERNATING INJECTION BETWEEN ABDOMEN AND SIDE
     Route: 058
  3. LISINOPRIL. [Concomitant]
     Active Substance: LISINOPRIL
  4. METOPROLOL. [Concomitant]
     Active Substance: METOPROLOL

REACTIONS (5)
  - Device safety feature issue [Recovered/Resolved]
  - Scratch [Recovered/Resolved]
  - Off label use [Not Recovered/Not Resolved]
  - Device malfunction [Recovered/Resolved]
  - Device delivery system issue [Recovered/Resolved]

NARRATIVE: CASE EVENT DATE: 2018
